FAERS Safety Report 7414651-3 (Version None)
Quarter: 2011Q2

REPORT INFORMATION
  Report Type: 
  Country: None (occurrence: None)
  Receive Date: 20110414
  Receipt Date: 20110401
  Transmission Date: 20111010
  Serious: Yes (Other)
  Sender: FDA-Public Use
  Company Number: FR-PFIZER INC-2010006312

PATIENT
  Sex: Female

DRUGS (5)
  1. EFFEXOR XR [Suspect]
     Dosage: UNK
     Route: 048
     Dates: start: 20091001, end: 20091101
  2. EFFEXOR XR [Suspect]
     Dosage: UNK
     Dates: start: 20091101
  3. XANAX [Suspect]
     Dosage: UNK
     Dates: start: 20091001
  4. EFFEXOR XR [Suspect]
     Dosage: UNK
     Route: 048
     Dates: start: 20070704
  5. VITAMINS [Suspect]
     Dosage: UNK
     Dates: start: 20091001

REACTIONS (3)
  - ANXIETY [None]
  - DRUG WITHDRAWAL SYNDROME [None]
  - ABORTION SPONTANEOUS [None]
